FAERS Safety Report 4832030-X (Version None)
Quarter: 2005Q4

REPORT INFORMATION
  Report Type: 
  Country: None (occurrence: None)
  Receive Date: 20051116
  Receipt Date: 20051010
  Transmission Date: 20060501
  Serious: Yes (Hospitalization)
  Sender: FDA-Public Use
  Company Number: DSA_27263_2005

PATIENT
  Age: 53 Year
  Sex: Female

DRUGS (2)
  1. TAVOR [Suspect]
     Dates: start: 20051007, end: 20051007
  2. VENLAFAXINE HCL [Suspect]
     Dosage: 3000 MG ONCE PO
     Route: 048
     Dates: start: 20051007, end: 20051007

REACTIONS (4)
  - DEPRESSED LEVEL OF CONSCIOUSNESS [None]
  - DRY MOUTH [None]
  - INTENTIONAL OVERDOSE [None]
  - TREMOR [None]
